FAERS Safety Report 9188421 (Version 1)
Quarter: 2013Q1

REPORT INFORMATION
  Report Type: Other
  Country: BE (occurrence: BE)
  Receive Date: 20130325
  Receipt Date: 20130325
  Transmission Date: 20140127
  Serious: Yes (Death, Other)
  Sender: FDA-Public Use
  Company Number: BE-ACTELION-A-CH2013-81106

PATIENT
  Age: 58 Year
  Sex: Male

DRUGS (1)
  1. VENTAVIS BAYER SCHERING [Suspect]
     Indication: PORTOPULMONARY HYPERTENSION
     Dosage: UNK
     Route: 055

REACTIONS (12)
  - Portopulmonary hypertension [Fatal]
  - Haemodynamic instability [Fatal]
  - Right ventricular failure [Fatal]
  - Pulmonary arterial pressure increased [Fatal]
  - Condition aggravated [Fatal]
  - Complications of transplanted liver [Unknown]
  - Hypovolaemic shock [Unknown]
  - Intra-abdominal haemorrhage [Unknown]
  - Abdominal compartment syndrome [Unknown]
  - Intra-abdominal pressure increased [Unknown]
  - Lactic acidosis [Unknown]
  - Abdominal operation [Unknown]
